FAERS Safety Report 7631512-5 (Version None)
Quarter: 2011Q3

REPORT INFORMATION
  Report Type: 
  Country: None (occurrence: None)
  Receive Date: 20110725
  Receipt Date: 20110721
  Transmission Date: 20111222
  Serious: Yes (Death, Hospitalization)
  Sender: FDA-Public Use
  Company Number: NO-BRISTOL-MYERS SQUIBB COMPANY-15915267

PATIENT
  Age: 75 Year
  Sex: Male

DRUGS (6)
  1. ONDANSETRON [Concomitant]
     Dates: start: 20110610, end: 20110611
  2. AFIPRAN [Concomitant]
  3. ETOPOSIDE [Suspect]
     Indication: NEOPLASM MALIGNANT
     Dosage: FIRST DOSE 10-JUN-2011, SECOND DOSE 30-JUN-2011
     Dates: start: 20110610, end: 20110707
  4. XELODA [Suspect]
     Indication: NEOPLASM MALIGNANT
     Dosage: GIVEN DAILY ON DAYS BETWEEN ETOPOSIDE AND CISPLATIN
     Dates: start: 20110610, end: 20110707
  5. CISPLATIN [Suspect]
     Indication: NEOPLASM MALIGNANT
     Dosage: FIRST DOSE 10-JUN-2011, SECOND DOSE 30-JUN-2011
     Dates: start: 20110610, end: 20110707
  6. MEDROL [Concomitant]
     Dates: start: 20110610, end: 20110611

REACTIONS (4)
  - RENAL FAILURE ACUTE [None]
  - PERIPHERAL EMBOLISM [None]
  - ELECTROLYTE IMBALANCE [None]
  - DIARRHOEA [None]
